FAERS Safety Report 19385875 (Version 1)
Quarter: 2021Q2

REPORT INFORMATION
  Report Type: Spontaneous
  Country: DE (occurrence: DE)
  Receive Date: 20210608
  Receipt Date: 20210608
  Transmission Date: 20210717
  Serious: Yes (Hospitalization, Other)
  Sender: FDA-Public Use
  Company Number: DE-AUROBINDO-AUR-APL-2021-023061

PATIENT
  Age: 42 Year
  Sex: Male

DRUGS (15)
  1. FOLINIC ACID [Suspect]
     Active Substance: LEUCOVORIN
     Dosage: 200 MILLIGRAM/SQ. METER (2?WEEKLY CYCLES)
     Route: 065
  2. EPIRUBICIN [Suspect]
     Active Substance: EPIRUBICIN
     Indication: CHEMOTHERAPY
     Dosage: 50 MILLIGRAM/SQ. METER (3?WEEK CYCLES)
     Route: 065
  3. OXALIPLATIN. [Suspect]
     Active Substance: OXALIPLATIN
     Indication: CHEMOTHERAPY
     Dosage: 130 MILLIGRAM/SQ. METER (ON DAY 1)
     Route: 065
  4. CAPECITABINE. [Suspect]
     Active Substance: CAPECITABINE
     Indication: CHEMOTHERAPY
     Dosage: 625 MILLIGRAM/SQ. METER, TWO TIMES A DAY (FOR 21 DAYS)
     Route: 065
  5. FLUOROURACIL. [Suspect]
     Active Substance: FLUOROURACIL
     Indication: CHEMOTHERAPY
     Dosage: 2600 MILLIGRAM/SQ. METER (ON DAY 1)
     Route: 065
  6. FLUOROURACIL. [Suspect]
     Active Substance: FLUOROURACIL
     Indication: CHEMOTHERAPY
     Dosage: 400 MILLIGRAM/SQ. METER (ON DAYS 1 AND 2)
     Route: 040
  7. OXALIPLATIN. [Suspect]
     Active Substance: OXALIPLATIN
     Dosage: 85 MICROGRAM/SQ. METER (2?WEEKLY CYCLES)
     Route: 065
  8. FOLINIC ACID [Suspect]
     Active Substance: LEUCOVORIN
     Indication: CHEMOTHERAPY
     Dosage: 200 MILLIGRAM/SQ. METER (ON DAY 1)
     Route: 065
  9. OXALIPLATIN. [Suspect]
     Active Substance: OXALIPLATIN
     Dosage: 1800 MILLIGRAM/SQ. METER (TOTAL DOSE)
     Route: 065
  10. DOXORUBICIN [Concomitant]
     Active Substance: DOXORUBICIN
     Indication: PRODUCT USED FOR UNKNOWN INDICATION
     Dosage: UNK
     Route: 065
  11. TRASTUZUMAB. [Suspect]
     Active Substance: TRASTUZUMAB
     Indication: CHEMOTHERAPY
     Dosage: 6 MILLIGRAM/KILOGRAM (AS A FIRST DOSE)
     Route: 065
  12. IRINOTECAN [Suspect]
     Active Substance: IRINOTECAN
     Indication: CHEMOTHERAPY
     Dosage: 180 MILLIGRAM/SQ. METER 2?WEEKLY CYCLES (ON DAY 1)
     Route: 065
  13. FLUOROURACIL. [Suspect]
     Active Substance: FLUOROURACIL
     Dosage: 600 MILLIGRAM/SQ. METER (ON DAYS 1 AND 2)
     Route: 065
  14. TRASTUZUMAB. [Suspect]
     Active Substance: TRASTUZUMAB
     Dosage: 4 MILLIGRAM/KILOGRAM (ON DAY 1)
     Route: 065
  15. CISPLATIN. [Concomitant]
     Active Substance: CISPLATIN
     Indication: PRODUCT USED FOR UNKNOWN INDICATION
     Dosage: UNK
     Route: 065

REACTIONS (3)
  - Dry skin [Recovered/Resolved]
  - Neuropathy peripheral [Recovered/Resolved]
  - Fatigue [Recovered/Resolved]
